FAERS Safety Report 8599542-7 (Version None)
Quarter: 2012Q3

REPORT INFORMATION
  Report Type: 
  Country: None (occurrence: None)
  Receive Date: 20120816
  Receipt Date: 20120813
  Transmission Date: 20120928
  Serious: Yes (Death, Hospitalization, Other)
  Sender: FDA-Public Use
  Company Number: US-ELI_LILLY_AND_COMPANY-US201208004331

PATIENT
  Age: 76 Year
  Sex: Female

DRUGS (2)
  1. EFFIENT [Suspect]
     Dosage: UNK, UNKNOWN
     Route: 065
     Dates: start: 20120808, end: 20120809
  2. INTEGRILIN [Concomitant]
     Indication: MYOCARDIAL INFARCTION
     Dosage: UNK, UNKNOWN
     Route: 065

REACTIONS (3)
  - DEATH [None]
  - CARDIAC ARREST [None]
  - MYOCARDIAL INFARCTION [None]
